FAERS Safety Report 6208172-3 (Version None)
Quarter: 2009Q2

REPORT INFORMATION
  Report Type: 
  Country: None (occurrence: None)
  Receive Date: 20090529
  Receipt Date: 20090513
  Transmission Date: 20091009
  Serious: No
  Sender: FDA-Public Use
  Company Number: JP-BRISTOL-MYERS SQUIBB COMPANY-14532113

PATIENT
  Age: 43 Year
  Sex: Female
  Weight: 55 kg

DRUGS (8)
  1. ABILIFY [Suspect]
     Indication: SCHIZOPHRENIA
     Dosage: 1NOV07-14NOV07,6MG,14D 15NOV7-5DEC07,12MG,21D 6DEC7-8JAN08,18MG,34D 9-16JAN08,6MG,8D
     Route: 048
     Dates: start: 20071101, end: 20080116
  2. LENDORMIN [Concomitant]
     Dosage: FORM-TABS
  3. AKINETON [Concomitant]
     Dosage: FORM-TABS
     Dates: start: 20000807
  4. RIVOTRIL [Concomitant]
     Dosage: FORM-TABS
     Dates: start: 20020604
  5. MAGNESIUM OXIDE [Concomitant]
     Dosage: FORM-POWDER
     Dates: start: 20031027, end: 20080206
  6. BETHANECHOL CHLORIDE [Concomitant]
     Dosage: FORM-POWDER
     Dates: start: 20060404, end: 20080206
  7. RISPERDAL [Concomitant]
     Dosage: FORM-TABS
     Dates: start: 20060404
  8. SENNOSIDE A [Concomitant]
     Dates: start: 20070124

REACTIONS (1)
  - BEREAVEMENT REACTION [None]
